FAERS Safety Report 10013547 (Version 3)
Quarter: 2014Q2

REPORT INFORMATION
  Report Type: Spontaneous
  Country: FI (occurrence: FI)
  Receive Date: 20140315
  Receipt Date: 20140505
  Transmission Date: 20141212
  Serious: Yes (Other)
  Sender: FDA-Public Use
  Company Number: FI-ROCHE-1354090

PATIENT
  Age: 52 Year
  Sex: Male

DRUGS (10)
  1. MABTHERA [Suspect]
     Indication: RHEUMATOID ARTHRITIS
     Route: 042
     Dates: start: 201212
  2. MABTHERA [Suspect]
     Route: 042
     Dates: start: 201306
  3. MABTHERA [Suspect]
     Route: 042
     Dates: start: 20131219
  4. METHOTREXATE [Concomitant]
     Indication: RHEUMATOID ARTHRITIS
     Route: 065
     Dates: end: 20131219
  5. METHOTREXATE [Concomitant]
     Route: 065
     Dates: end: 20140213
  6. FOLIC ACID [Concomitant]
     Indication: RHEUMATOID ARTHRITIS
     Route: 048
  7. OXIKLORIN [Concomitant]
     Indication: RHEUMATOID ARTHRITIS
     Route: 048
  8. PREDNISOLON [Concomitant]
     Indication: RHEUMATOID ARTHRITIS
     Route: 065
  9. KALCIPOS-D [Concomitant]
     Indication: RHEUMATOID ARTHRITIS
     Dosage: 500 MG/4000 IU
     Route: 065
  10. DIOVAN [Concomitant]
     Indication: HYPERTENSION
     Route: 048

REACTIONS (3)
  - Agranulocytosis [Recovered/Resolved]
  - White blood cell count decreased [Recovered/Resolved]
  - Disease recurrence [Recovered/Resolved]
